FAERS Safety Report 13774531 (Version 1)
Quarter: 2017Q3

REPORT INFORMATION
  Report Type: Spontaneous
  Country: FR (occurrence: FR)
  Receive Date: 20170721
  Receipt Date: 20170721
  Transmission Date: 20171127
  Serious: Yes (Other)
  Sender: FDA-Public Use
  Company Number: FR-BAYER-2017-139043

PATIENT
  Age: 41 Year
  Sex: Female

DRUGS (1)
  1. MIRENA [Suspect]
     Active Substance: LEVONORGESTREL
     Indication: CONTRACEPTION
     Dosage: 20 MCG/24HR, CONT
     Route: 015
     Dates: start: 20130129, end: 20170523

REACTIONS (15)
  - Fluid retention [Not Recovered/Not Resolved]
  - Irritability [Recovered/Resolved]
  - Diarrhoea [Recovered/Resolved]
  - Arthralgia [Recovered/Resolved]
  - Adnexa uteri pain [Recovered/Resolved]
  - Depression [Recovered/Resolved]
  - Alopecia [Recovering/Resolving]
  - Weight increased [Recovering/Resolving]
  - Flatulence [Recovering/Resolving]
  - Tinnitus [Recovered/Resolved]
  - Psoriasis [Not Recovered/Not Resolved]
  - Hyperhidrosis [Recovered/Resolved]
  - Hyperthyroidism [Recovered/Resolved]
  - Loss of libido [Not Recovered/Not Resolved]
  - Migraine [Recovered/Resolved with Sequelae]

NARRATIVE: CASE EVENT DATE: 201309
